FAERS Safety Report 24991804 (Version 1)
Quarter: 2025Q1

REPORT INFORMATION
  Report Type: Spontaneous
  Country: US (occurrence: None)
  Receive Date: 20250220
  Receipt Date: 20250220
  Transmission Date: 20250408
  Serious: No
  Sender: FDA-CTU
  Company Number: None

PATIENT
  Age: 78 Year
  Sex: Male
  Weight: 96 kg

DRUGS (1)
  1. FERUMOXYTOL [Suspect]
     Active Substance: FERUMOXYTOL
     Indication: Anaemia
     Route: 042
     Dates: start: 20241202, end: 20241202

REACTIONS (11)
  - Back pain [None]
  - Dyspnoea [None]
  - Flushing [None]
  - Hypotension [None]
  - Hyperhidrosis [None]
  - Vomiting [None]
  - Infusion related reaction [None]
  - Nausea [None]
  - Diarrhoea [None]
  - Feeling abnormal [None]
  - Pain [None]

NARRATIVE: CASE EVENT DATE: 20250102
